FAERS Safety Report 19162731 (Version 1)
Quarter: 2021Q2

REPORT INFORMATION
  Report Type: Spontaneous
  Country: US (occurrence: US)
  Receive Date: 20210420
  Receipt Date: 20210420
  Transmission Date: 20210717
  Serious: No
  Sender: FDA-Public Use
  Company Number: US-SA-2021SA129512

PATIENT
  Age: 83 Year
  Sex: Female

DRUGS (1)
  1. LUMIZYME [Suspect]
     Active Substance: ALGLUCOSIDASE ALFA
     Indication: GLYCOGEN STORAGE DISEASE TYPE II
     Dosage: UNK
     Route: 065

REACTIONS (3)
  - Tibia fracture [Unknown]
  - Fall [Unknown]
  - Patella fracture [Unknown]

NARRATIVE: CASE EVENT DATE: 20210409
